FAERS Safety Report 10496520 (Version 1)
Quarter: 2014Q4

REPORT INFORMATION
  Report Type: Spontaneous
  Country: US (occurrence: US)
  Receive Date: 20141004
  Receipt Date: 20141004
  Transmission Date: 20150528
  Serious: No
  Sender: FDA-Public Use
  Company Number: US-009507513-1409USA014911

PATIENT
  Age: 70 Year
  Sex: Female

DRUGS (6)
  1. PRINIVIL [Suspect]
     Active Substance: LISINOPRIL
     Indication: HYPERTENSION
  2. NASACORT [Concomitant]
     Active Substance: TRIAMCINOLONE ACETONIDE
     Indication: HYPERSENSITIVITY
  3. COMBIGAN [Suspect]
     Active Substance: BRIMONIDINE TARTRATE\TIMOLOL MALEATE
     Indication: GLAUCOMA
     Dosage: 1 DROP TO EACH EYE TWICE DAILY
     Route: 047
     Dates: start: 20090615
  4. SINGULAIR [Suspect]
     Active Substance: MONTELUKAST SODIUM
     Indication: HYPERSENSITIVITY
  5. LANTUS [Concomitant]
     Active Substance: INSULIN GLARGINE
     Indication: DIABETES MELLITUS
  6. SYMBICORT [Concomitant]
     Active Substance: BUDESONIDE\FORMOTEROL FUMARATE DIHYDRATE
     Indication: ASTHMA

REACTIONS (17)
  - Palpitations [Unknown]
  - Bronchitis [Unknown]
  - Nasal disorder [Unknown]
  - Depression [Unknown]
  - Anxiety [Unknown]
  - Dyspnoea [Unknown]
  - Hypersensitivity [Unknown]
  - Myalgia [Unknown]
  - Blood glucose increased [Unknown]
  - Depressed mood [Unknown]
  - Sinus disorder [Unknown]
  - Pruritus generalised [Unknown]
  - Dizziness [Unknown]
  - Muscular weakness [Unknown]
  - Asthma [Unknown]
  - Paraesthesia [Unknown]
  - Headache [Unknown]
